FAERS Safety Report 22092952 (Version 1)
Quarter: 2023Q1

REPORT INFORMATION
  Report Type: Report from Study
  Country: US (occurrence: None)
  Receive Date: 20230314
  Receipt Date: 20230314
  Transmission Date: 20230417
  Serious: Yes (Death)
  Sender: FDA-Public Use
  Company Number: US-ROCHE-3307536

PATIENT

DRUGS (2)
  1. ATEZOLIZUMAB [Suspect]
     Active Substance: ATEZOLIZUMAB
     Indication: Neoplasm
     Dosage: ON 09/FEB/2022, MOST RECENT DOSE WAS ADMINISTERED
     Route: 041
     Dates: start: 20211208
  2. TIVOZANIB [Suspect]
     Active Substance: TIVOZANIB
     Indication: Neoplasm
     Route: 065

REACTIONS (1)
  - Death [Fatal]
